FAERS Safety Report 5810853-8 (Version None)
Quarter: 2008Q3

REPORT INFORMATION
  Report Type: 
  Country: None (occurrence: None)
  Receive Date: 20080710
  Receipt Date: 20080610
  Transmission Date: 20090109
  Serious: No
  Sender: FDA-Public Use
  Company Number: ADE# 08-089

PATIENT
  Sex: Female
  Weight: 105.6881 kg

DRUGS (6)
  1. CARBAMAZEPINE [Suspect]
     Dosage: 1000 MG DAILY
     Dates: start: 20070618
  2. ASPIRIN [Concomitant]
  3. CLONAZEPAM [Concomitant]
  4. PAXIL [Concomitant]
  5. ETHOSUXIMIDE [Concomitant]
  6. KEPPRA [Concomitant]

REACTIONS (5)
  - ATAXIA [None]
  - DRUG WITHDRAWAL SYNDROME [None]
  - DYSARTHRIA [None]
  - TACHYCARDIA [None]
  - TREMOR [None]
